FAERS Safety Report 11444659 (Version 1)
Quarter: 2015Q3

REPORT INFORMATION
  Report Type: Spontaneous
  Country: US (occurrence: None)
  Receive Date: 20150831
  Receipt Date: 20150831
  Transmission Date: 20151125
  Serious: Yes (Other)
  Sender: FDA-Public Use
  Company Number: 2015SMT00273

PATIENT

DRUGS (1)
  1. REGRANEX [Suspect]
     Active Substance: BECAPLERMIN
     Indication: DIABETIC FOOT

REACTIONS (5)
  - Lymphoma [None]
  - Osteomyelitis [None]
  - Toe amputation [None]
  - Application site discharge [None]
  - Bone disorder [None]
